FAERS Safety Report 15922762 (Version 1)
Quarter: 2019Q1

REPORT INFORMATION
  Report Type: Spontaneous
  Country: FR (occurrence: FR)
  Receive Date: 20190206
  Receipt Date: 20190206
  Transmission Date: 20190417
  Serious: Yes (Hospitalization)
  Sender: FDA-Public Use
  Company Number: FR-TEVA-2019-FR-1008671

PATIENT
  Age: 68 Year
  Sex: Female

DRUGS (1)
  1. OXALIPLATINE [Suspect]
     Active Substance: OXALIPLATIN
     Indication: OVARIAN CANCER
     Route: 041
     Dates: start: 20181108

REACTIONS (2)
  - Hyperhidrosis [Recovered/Resolved]
  - Dysaesthesia [Recovered/Resolved with Sequelae]

NARRATIVE: CASE EVENT DATE: 20181108
